FAERS Safety Report 15030113 (Version 6)
Quarter: 2019Q4

REPORT INFORMATION
  Report Type: Report from Study
  Country: CL (occurrence: CL)
  Receive Date: 20180619
  Receipt Date: 20191203
  Transmission Date: 20200122
  Serious: Yes (Hospitalization, Other)
  Sender: FDA-Public Use
  Company Number: CL-BRISTOL-MYERS SQUIBB COMPANY-BMS-2016-026321

PATIENT
  Age: 77 Year
  Sex: Female

DRUGS (3)
  1. CELEBRA [Concomitant]
     Active Substance: CELECOXIB
     Indication: PRODUCT USED FOR UNKNOWN INDICATION
     Dosage: UNK
     Route: 065
  2. ABATACEPT [Suspect]
     Active Substance: ABATACEPT
     Indication: PRODUCT USED FOR UNKNOWN INDICATION
     Dosage: 750 MILLIGRAM, QWK
     Route: 042
     Dates: start: 20160614
  3. ABATACEPT [Suspect]
     Active Substance: ABATACEPT
     Indication: RHEUMATOID ARTHRITIS
     Dosage: 125 MILLIGRAM, QWK
     Route: 058
     Dates: start: 20160114, end: 20190731

REACTIONS (12)
  - Musculoskeletal discomfort [Recovering/Resolving]
  - Eye disorder [Recovering/Resolving]
  - Dyspnoea [Recovered/Resolved]
  - Basal cell carcinoma [Unknown]
  - Nasopharyngitis [Recovered/Resolved]
  - Nerve compression [Recovering/Resolving]
  - Cataract [Recovering/Resolving]
  - Osteonecrosis [Recovered/Resolved]
  - Anaemia [Unknown]
  - Anaemia postoperative [Unknown]
  - Pain [Not Recovered/Not Resolved]
  - Pyrexia [Recovered/Resolved]

NARRATIVE: CASE EVENT DATE: 20160320
